FAERS Safety Report 4908568-3 (Version None)
Quarter: 2006Q1

REPORT INFORMATION
  Report Type: 
  Country: None (occurrence: None)
  Receive Date: 20060210
  Receipt Date: 20050829
  Transmission Date: 20060701
  Serious: No
  Sender: FDA-Public Use
  Company Number: US-GLAXOSMITHKLINE-A0572460A

PATIENT
  Age: 10 Year
  Sex: Male

DRUGS (3)
  1. PAXIL CR [Suspect]
     Indication: DRUG USE FOR UNKNOWN INDICATION
     Dosage: 12.5MG AT NIGHT
     Route: 048
  2. GEODON [Concomitant]
  3. DEPAKOTE [Concomitant]

REACTIONS (1)
  - SOMNOLENCE [None]
